FAERS Safety Report 4625639-X (Version None)
Quarter: 2005Q1

REPORT INFORMATION
  Report Type: 
  Country: None (occurrence: None)
  Receive Date: 20050330
  Receipt Date: 20050315
  Transmission Date: 20050727
  Serious: Yes (Other)
  Sender: FDA-Public Use
  Company Number: FR_050306043

PATIENT
  Age: 75 Year
  Sex: Female

DRUGS (5)
  1. ALIMTA [Suspect]
     Indication: PLEURAL MESOTHELIOMA MALIGNANT
     Dosage: 500 MG/M2/1 OTHER
     Dates: start: 20041001
  2. CISPLATIN [Concomitant]
  3. CORTICOID [Concomitant]
  4. FOLIC ACID [Concomitant]
  5. VITAMIN B-12 [Concomitant]

REACTIONS (1)
  - URTICARIA [None]
